FAERS Safety Report 25455082 (Version 1)
Quarter: 2025Q2

REPORT INFORMATION
  Report Type: Spontaneous
  Country: US (occurrence: US)
  Receive Date: 20250619
  Receipt Date: 20250619
  Transmission Date: 20250717
  Serious: Yes (Hospitalization)
  Sender: BRISTOL-MYERS SQUIBB COMPANY
  Company Number: US-BRISTOL-MYERS SQUIBB COMPANY-2025-085147

PATIENT
  Age: 67 Year
  Sex: Male

DRUGS (1)
  1. LENALIDOMIDE [Suspect]
     Active Substance: LENALIDOMIDE
     Indication: Plasma cell myeloma
     Dosage: TAKE 1 CAPSULE (5 MG) BY MOUTH DAILY FOR 21 DAYS AND THEN OFF FOR 7 DAYS.
     Route: 048
     Dates: end: 20250530

REACTIONS (2)
  - White blood cell count decreased [Not Recovered/Not Resolved]
  - Ligament disorder [Not Recovered/Not Resolved]

NARRATIVE: CASE EVENT DATE: 20250101
